FAERS Safety Report 8812432 (Version 2)
Quarter: 2012Q4

REPORT INFORMATION
  Report Type: 
  Country: US (occurrence: US)
  Receive Date: 20120927
  Receipt Date: 20121108
  Transmission Date: 20130627
  Serious: Yes (Other)
  Sender: FDA-Public Use
  Company Number: US-PFIZER INC-2012236564

PATIENT
  Age: 64 Year
  Sex: Female

DRUGS (3)
  1. AROMASIN [Suspect]
     Indication: BREAST CANCER FEMALE
     Dosage: 25 mg, 1x/day
     Dates: start: 20120725, end: 20120817
  2. AFINITOR [Suspect]
     Indication: BREAST CANCER FEMALE
     Dosage: 10 mg, 1x/day
     Route: 048
     Dates: start: 20120727, end: 20120817
  3. XGEVA [Concomitant]
     Indication: BONE METASTASES
     Dosage: 120 mg,
     Dates: start: 20110623

REACTIONS (1)
  - Thrombocytopenia [Recovering/Resolving]
